FAERS Safety Report 4483522-7 (Version None)
Quarter: 2004Q4

REPORT INFORMATION
  Report Type: 
  Country: None (occurrence: None)
  Receive Date: 20041019
  Receipt Date: 20041019
  Transmission Date: 20050328
  Serious: Yes (Life-Threatening, Hospitalization)
  Sender: FDA-Public Use
  Company Number: None

PATIENT
  Sex: Male

DRUGS (10)
  1. LINEZOLID 600 MG [Suspect]
     Indication: GRAFT INFECTION
     Dosage: 600 MG DAILY ORAL
     Route: 048
     Dates: start: 20040615, end: 20040712
  2. ASPIRIN [Concomitant]
  3. FELODIPINE [Concomitant]
  4. GATIFLOXACIN [Concomitant]
  5. SIMVASTATIN [Concomitant]
  6. RANITIDINE [Concomitant]
  7. METOPROLOL SUCCINATE [Concomitant]
  8. DOCUSATE [Concomitant]
  9. OXYCOONE/APAP [Concomitant]
  10. WARFARIN [Concomitant]

REACTIONS (2)
  - THROMBOCYTOPENIA [None]
  - UROSEPSIS [None]
